FAERS Safety Report 25468358 (Version 1)
Quarter: 2025Q2

REPORT INFORMATION
  Report Type: Other
  Country: CA (occurrence: CA)
  Receive Date: 20250623
  Receipt Date: 20250623
  Transmission Date: 20250717
  Serious: Yes (Hospitalization, Other)
  Sender: LUPIN
  Company Number: CA-LUPIN PHARMACEUTICALS INC.-2025-05190

PATIENT
  Age: 33 Week
  Sex: Female
  Weight: 2 kg

DRUGS (8)
  1. CEPHALEXIN [Suspect]
     Active Substance: CEPHALEXIN
     Indication: Foetal exposure during pregnancy
  2. ERYTHROMYCIN [Suspect]
     Active Substance: ERYTHROMYCIN
     Indication: Foetal exposure during pregnancy
  3. OMALIZUMAB [Suspect]
     Active Substance: OMALIZUMAB
     Indication: Foetal exposure during pregnancy
  4. OMALIZUMAB [Suspect]
     Active Substance: OMALIZUMAB
  5. AMOXICILLIN [Suspect]
     Active Substance: AMOXICILLIN
     Indication: Foetal exposure during pregnancy
  6. FLAGYL [Concomitant]
     Active Substance: METRONIDAZOLE\METRONIDAZOLE HYDROCHLORIDE
     Indication: Foetal exposure during pregnancy
  7. KEFLEX [Concomitant]
     Active Substance: CEPHALEXIN
     Indication: Foetal exposure during pregnancy
  8. LANSOPRAZOLE [Concomitant]
     Active Substance: LANSOPRAZOLE
     Indication: Foetal exposure during pregnancy

REACTIONS (4)
  - Foetal exposure during pregnancy [Unknown]
  - Low birth weight baby [Unknown]
  - Neonatal infection [Unknown]
  - Premature baby [Unknown]
